FAERS Safety Report 17684890 (Version 2)
Quarter: 2021Q2

REPORT INFORMATION
  Report Type: Spontaneous
  Country: US (occurrence: US)
  Receive Date: 20200420
  Receipt Date: 20210416
  Transmission Date: 20210716
  Serious: Yes (Other)
  Sender: FDA-Public Use
  Company Number: US-ASTRAZENECA-2020SE50723

PATIENT
  Age: 25114 Day
  Sex: Female
  Weight: 88 kg

DRUGS (12)
  1. SEVELAMER [Concomitant]
     Active Substance: SEVELAMER
  2. ABACAVIR. [Concomitant]
     Active Substance: ABACAVIR
  3. PRILOSEC [Suspect]
     Active Substance: OMEPRAZOLE MAGNESIUM
     Route: 048
     Dates: start: 200101, end: 201501
  4. PRILOSEC OTC [Suspect]
     Active Substance: OMEPRAZOLE MAGNESIUM
     Route: 048
     Dates: start: 200101, end: 201501
  5. EZETIMIBE. [Concomitant]
     Active Substance: EZETIMIBE
  6. RITONAVIR. [Concomitant]
     Active Substance: RITONAVIR
  7. PREVACID [Suspect]
     Active Substance: LANSOPRAZOLE
     Route: 065
     Dates: start: 200101, end: 201501
  8. AMLODIPINE [Concomitant]
     Active Substance: AMLODIPINE BESYLATE
  9. ATAZANAVIR. [Concomitant]
     Active Substance: ATAZANAVIR
  10. CHOLECALCIFEROL [Concomitant]
     Active Substance: CHOLECALCIFEROL
  11. GEMFIBROZIL. [Concomitant]
     Active Substance: GEMFIBROZIL
  12. TORSEMIDE. [Concomitant]
     Active Substance: TORSEMIDE

REACTIONS (7)
  - End stage renal disease [Unknown]
  - Chronic kidney disease-mineral and bone disorder [Unknown]
  - Acute kidney injury [Unknown]
  - Nephrogenic anaemia [Unknown]
  - Hyperparathyroidism secondary [Unknown]
  - Renal failure [Unknown]
  - Chronic kidney disease [Unknown]

NARRATIVE: CASE EVENT DATE: 20140508
